FAERS Safety Report 5229187-8 (Version None)
Quarter: 2007Q1

REPORT INFORMATION
  Report Type: 
  Country: None (occurrence: None)
  Receive Date: 20070205
  Receipt Date: 20070124
  Transmission Date: 20070707
  Serious: Yes (Death, Hospitalization)
  Sender: FDA-Public Use
  Company Number: DK-BOEHRINGER INGELHEIM GMBH, GERMANY-2007-DE-00453GD

PATIENT

DRUGS (5)
  1. IBUPROFEN [Suspect]
  2. NAPROXEN [Suspect]
  3. MELOXICAM [Suspect]
  4. ASPIRIN [Suspect]
  5. GLUCOCORTICOIDS [Suspect]

REACTIONS (1)
  - PEPTIC ULCER PERFORATION [None]
